FAERS Safety Report 5660162-5 (Version None)
Quarter: 2008Q1

REPORT INFORMATION
  Report Type: 
  Country: None (occurrence: None)
  Receive Date: 20080310
  Receipt Date: 20080310
  Transmission Date: 20080703
  Serious: Yes (Other)
  Sender: FDA-Public Use
  Company Number: None

PATIENT
  Sex: Female
  Weight: 65.7716 kg

DRUGS (1)
  1. STRATTERA [Suspect]
     Indication: ATTENTION DEFICIT/HYPERACTIVITY DISORDER
     Dosage: 2  40ML PILLS  1 DAILY PO
     Route: 048
     Dates: start: 20060601, end: 20080201

REACTIONS (3)
  - HYPERVENTILATION [None]
  - NIGHTMARE [None]
  - PSYCHOTIC DISORDER [None]
